FAERS Safety Report 14642962 (Version 9)
Quarter: 2018Q3

REPORT INFORMATION
  Report Type: Spontaneous
  Country: FR (occurrence: FR)
  Receive Date: 20180315
  Receipt Date: 20180711
  Transmission Date: 20181010
  Serious: Yes (Hospitalization, Disabling, Other)
  Sender: FDA-Public Use
  Company Number: FR-BEH-2018088623

PATIENT
  Age: 69 Year
  Sex: Male
  Weight: 68 kg

DRUGS (40)
  1. PRIVIGEN [Suspect]
     Active Substance: HUMAN IMMUNOGLOBULIN G
     Dosage: 10 G, TOT
     Route: 042
     Dates: start: 20161215, end: 20161215
  2. PRIVIGEN [Suspect]
     Active Substance: HUMAN IMMUNOGLOBULIN G
     Dosage: 20 G, TOT
     Route: 042
     Dates: start: 20170209, end: 20170209
  3. PRIVIGEN [Suspect]
     Active Substance: HUMAN IMMUNOGLOBULIN G
     Dosage: 20 G, TOT
     Route: 042
     Dates: start: 20170725, end: 20170725
  4. PRIVIGEN [Suspect]
     Active Substance: HUMAN IMMUNOGLOBULIN G
     Dosage: 10 G, TOT
     Route: 042
     Dates: start: 20170822, end: 20170822
  5. PRIVIGEN [Suspect]
     Active Substance: HUMAN IMMUNOGLOBULIN G
     Dosage: 10 G, TOT
     Route: 042
     Dates: start: 20180109, end: 20180109
  6. PRIVIGEN [Suspect]
     Active Substance: HUMAN IMMUNOGLOBULIN G
     Dosage: 10 G, TOT
     Route: 042
     Dates: start: 20180306, end: 20180306
  7. PRIVIGEN [Suspect]
     Active Substance: HUMAN IMMUNOGLOBULIN G
     Indication: CHRONIC LYMPHOCYTIC LEUKAEMIA
     Dosage: UNK
     Route: 042
     Dates: start: 20151010
  8. PRIVIGEN [Suspect]
     Active Substance: HUMAN IMMUNOGLOBULIN G
     Dosage: 20 G, UNK
     Route: 042
     Dates: start: 20180109
  9. PRIVIGEN [Suspect]
     Active Substance: HUMAN IMMUNOGLOBULIN G
     Dosage: 20 G, TOT
     Route: 042
     Dates: start: 20170404, end: 20170404
  10. PRIVIGEN [Suspect]
     Active Substance: HUMAN IMMUNOGLOBULIN G
     Dosage: 10 G, TOT
     Route: 042
     Dates: start: 20170404, end: 20170404
  11. PRIVIGEN [Suspect]
     Active Substance: HUMAN IMMUNOGLOBULIN G
     Dosage: 20 G, TOT
     Route: 042
     Dates: start: 20170530, end: 20170530
  12. PRIVIGEN [Suspect]
     Active Substance: HUMAN IMMUNOGLOBULIN G
     Dosage: 20 G, TOT
     Route: 042
     Dates: start: 20180109, end: 20180109
  13. ELIQUIS [Concomitant]
     Active Substance: APIXABAN
     Indication: PHLEBITIS
  14. PRIVIGEN [Suspect]
     Active Substance: HUMAN IMMUNOGLOBULIN G
     Dosage: 20 G, TOT
     Route: 042
     Dates: start: 20161215, end: 20161215
  15. PRIVIGEN [Suspect]
     Active Substance: HUMAN IMMUNOGLOBULIN G
     Dosage: 20 G, TOT
     Route: 042
     Dates: start: 20170502, end: 20170502
  16. PRIVIGEN [Suspect]
     Active Substance: HUMAN IMMUNOGLOBULIN G
     Dosage: 20 G, TOT
     Route: 042
     Dates: start: 20170627, end: 20170627
  17. PRIVIGEN [Suspect]
     Active Substance: HUMAN IMMUNOGLOBULIN G
     Dosage: 10 G, TOT
     Route: 042
     Dates: start: 20170919, end: 20170919
  18. PRIVIGEN [Suspect]
     Active Substance: HUMAN IMMUNOGLOBULIN G
     Dosage: 10 G, TOT
     Route: 042
     Dates: start: 20171017, end: 20171017
  19. PRIVIGEN [Suspect]
     Active Substance: HUMAN IMMUNOGLOBULIN G
     Dosage: 20 G, TOT
     Route: 042
     Dates: start: 20161117, end: 20161117
  20. PRIVIGEN [Suspect]
     Active Substance: HUMAN IMMUNOGLOBULIN G
     Dosage: 10 G, UNK
     Route: 042
     Dates: start: 20180109
  21. PRIVIGEN [Suspect]
     Active Substance: HUMAN IMMUNOGLOBULIN G
     Dosage: 10 G, TOT
     Route: 042
     Dates: start: 20170112, end: 20170112
  22. PRIVIGEN [Suspect]
     Active Substance: HUMAN IMMUNOGLOBULIN G
     Dosage: 10 G, TOT
     Route: 042
     Dates: start: 20170209, end: 20170209
  23. PRIVIGEN [Suspect]
     Active Substance: HUMAN IMMUNOGLOBULIN G
     Dosage: 10 G, TOT
     Route: 042
     Dates: start: 20171114, end: 20171114
  24. ELIQUIS [Concomitant]
     Active Substance: APIXABAN
     Indication: PULMONARY EMBOLISM
     Dosage: UNK
     Route: 065
     Dates: start: 2017
  25. ZITHROMAX [Concomitant]
     Active Substance: AZITHROMYCIN DIHYDRATE
     Dosage: 3 DF, QW
     Route: 065
     Dates: start: 2015
  26. PRIVIGEN [Suspect]
     Active Substance: HUMAN IMMUNOGLOBULIN G
     Dosage: 10 G, TOT
     Route: 042
     Dates: start: 20170627, end: 20170627
  27. PRIVIGEN [Suspect]
     Active Substance: HUMAN IMMUNOGLOBULIN G
     Dosage: 30 G, UNK
     Route: 042
     Dates: start: 20180109
  28. PRIVIGEN [Suspect]
     Active Substance: HUMAN IMMUNOGLOBULIN G
     Dosage: 20 G, TOT
     Route: 042
     Dates: start: 20170309, end: 20170309
  29. PRIVIGEN [Suspect]
     Active Substance: HUMAN IMMUNOGLOBULIN G
     Dosage: 10 G, TOT
     Route: 042
     Dates: start: 20170725, end: 20170725
  30. PRIVIGEN [Suspect]
     Active Substance: HUMAN IMMUNOGLOBULIN G
     Dosage: 20 G, TOT
     Route: 042
     Dates: start: 20170919, end: 20170919
  31. PRIMPERAN [Concomitant]
     Active Substance: METOCLOPRAMIDE HYDROCHLORIDE
     Indication: NAUSEA
     Dosage: UNK, PRN
     Route: 065
  32. PRIVIGEN [Suspect]
     Active Substance: HUMAN IMMUNOGLOBULIN G
     Dosage: 10 G, TOT
     Route: 042
     Dates: start: 20161117, end: 20161117
  33. PRIVIGEN [Suspect]
     Active Substance: HUMAN IMMUNOGLOBULIN G
     Dosage: 10 G, TOT
     Route: 042
     Dates: start: 20170309, end: 20170309
  34. PRIVIGEN [Suspect]
     Active Substance: HUMAN IMMUNOGLOBULIN G
     Dosage: 10 G, TOT
     Route: 042
     Dates: start: 20170530, end: 20170530
  35. PRIVIGEN [Suspect]
     Active Substance: HUMAN IMMUNOGLOBULIN G
     Dosage: 20 G, TOT
     Route: 042
     Dates: start: 20170822, end: 20170822
  36. PRIVIGEN [Suspect]
     Active Substance: HUMAN IMMUNOGLOBULIN G
     Dosage: 20 G, TOT
     Route: 042
     Dates: start: 20171114, end: 20171114
  37. PRIVIGEN [Suspect]
     Active Substance: HUMAN IMMUNOGLOBULIN G
     Dosage: 20 G, TOT
     Route: 042
     Dates: start: 20170112, end: 20170112
  38. PRIVIGEN [Suspect]
     Active Substance: HUMAN IMMUNOGLOBULIN G
     Dosage: 10 G, TOT
     Route: 042
     Dates: start: 20170502, end: 20170502
  39. PRIVIGEN [Suspect]
     Active Substance: HUMAN IMMUNOGLOBULIN G
     Dosage: 20 G, TOT
     Route: 042
     Dates: start: 20171017, end: 20171017
  40. PRIVIGEN [Suspect]
     Active Substance: HUMAN IMMUNOGLOBULIN G
     Dosage: 20 G, TOT
     Route: 042
     Dates: start: 20180306, end: 20180306

REACTIONS (6)
  - Vomiting [Not Recovered/Not Resolved]
  - Feeling abnormal [Not Recovered/Not Resolved]
  - Tremor [Not Recovered/Not Resolved]
  - Balance disorder [Not Recovered/Not Resolved]
  - Haematemesis [Not Recovered/Not Resolved]
  - Memory impairment [Not Recovered/Not Resolved]

NARRATIVE: CASE EVENT DATE: 201706
